APPROVED DRUG PRODUCT: GLATIRAMER ACETATE
Active Ingredient: GLATIRAMER ACETATE
Strength: 40MG/ML
Dosage Form/Route: INJECTABLE;SUBCUTANEOUS
Application: A214022 | Product #001 | TE Code: AP
Applicant: HYBIO PHARMACEUTICAL CO LTD
Approved: Feb 11, 2026 | RLD: No | RS: No | Type: RX